FAERS Safety Report 4410944-2 (Version None)
Quarter: 2004Q3

REPORT INFORMATION
  Report Type: 
  Country: None (occurrence: None)
  Receive Date: 20040726
  Receipt Date: 20040712
  Transmission Date: 20050211
  Serious: Yes (Other)
  Sender: FDA-Public Use
  Company Number: HQWYE930217MAY04

PATIENT
  Sex: Female

DRUGS (10)
  1. EFFEXOR [Suspect]
     Indication: ANXIETY DISORDER
     Dosage: SEE IMAGE
     Dates: start: 20040501, end: 20040501
  2. EFFEXOR [Suspect]
     Indication: MAJOR DEPRESSION
     Dosage: SEE IMAGE
     Dates: start: 20040501, end: 20040501
  3. EFFEXOR [Suspect]
     Indication: ANXIETY DISORDER
     Dosage: SEE IMAGE
     Dates: end: 20040501
  4. EFFEXOR [Suspect]
     Indication: MAJOR DEPRESSION
     Dosage: SEE IMAGE
     Dates: end: 20040501
  5. EFFEXOR [Suspect]
     Indication: ANXIETY DISORDER
     Dosage: SEE IMAGE
     Dates: start: 19990101
  6. EFFEXOR [Suspect]
     Indication: MAJOR DEPRESSION
     Dosage: SEE IMAGE
     Dates: start: 19990101
  7. EFFEXOR [Suspect]
     Indication: ANXIETY DISORDER
     Dosage: SEE IMAGE
     Dates: start: 20040501
  8. EFFEXOR [Suspect]
     Indication: MAJOR DEPRESSION
     Dosage: SEE IMAGE
     Dates: start: 20040501
  9. SEROQUEL [Concomitant]
  10. WELLBUTRIN [Concomitant]

REACTIONS (7)
  - CONDITION AGGRAVATED [None]
  - DEPRESSION [None]
  - DRUG WITHDRAWAL SYNDROME [None]
  - FAMILY STRESS [None]
  - MENTAL DISORDER [None]
  - SELF MUTILATION [None]
  - SUICIDAL IDEATION [None]
